FAERS Safety Report 9496794 (Version 12)
Quarter: 2016Q1

REPORT INFORMATION
  Report Type: Report from Study
  Country: US (occurrence: US)
  Receive Date: 20130904
  Receipt Date: 20160303
  Transmission Date: 20160526
  Serious: Yes (Hospitalization, Other)
  Sender: FDA-Public Use
  Company Number: US-ROCHE-1242025

PATIENT
  Age: 44 Year
  Sex: Female

DRUGS (22)
  1. PEGASYS [Suspect]
     Active Substance: PEGINTERFERON ALFA-2A
     Dosage: PER 0.5ML PROCLOCK SUBCUTANEOUS WEEKLY
     Route: 058
     Dates: start: 20130514, end: 20140422
  2. COPEGUS [Suspect]
     Active Substance: RIBAVIRIN
     Route: 048
  3. LASIX [Concomitant]
     Active Substance: FUROSEMIDE
  4. PEGASYS [Suspect]
     Active Substance: PEGINTERFERON ALFA-2A
     Route: 058
     Dates: start: 20130926
  5. COPEGUS [Suspect]
     Active Substance: RIBAVIRIN
     Dosage: DIVIDED DOSES
     Route: 048
     Dates: start: 20130514
  6. COPEGUS [Suspect]
     Active Substance: RIBAVIRIN
     Route: 048
     Dates: start: 20130514, end: 20140422
  7. ATENOLOL. [Concomitant]
     Active Substance: ATENOLOL
     Dosage: DAILY
     Route: 065
  8. TRAZODONE [Concomitant]
     Active Substance: TRAZODONE HYDROCHLORIDE
  9. COPEGUS [Suspect]
     Active Substance: RIBAVIRIN
     Indication: CHRONIC HEPATITIS C
     Route: 048
     Dates: start: 20130514
  10. PROMACTA [Concomitant]
     Active Substance: ELTROMBOPAG OLAMINE
     Indication: PLATELET COUNT DECREASED
  11. CITALOPRAM [Concomitant]
     Active Substance: CITALOPRAM HYDROBROMIDE
  12. SPIRONOLACTONE. [Concomitant]
     Active Substance: SPIRONOLACTONE
     Dosage: 4 PILLS
     Route: 065
  13. AMBIEN [Concomitant]
     Active Substance: ZOLPIDEM TARTRATE
     Route: 065
  14. PEGASYS [Suspect]
     Active Substance: PEGINTERFERON ALFA-2A
     Route: 058
     Dates: start: 20131219
  15. COPEGUS [Suspect]
     Active Substance: RIBAVIRIN
     Route: 048
  16. INCIVEK [Suspect]
     Active Substance: TELAPREVIR
     Indication: CHRONIC HEPATITIS C
     Route: 065
     Dates: start: 20130611, end: 20130823
  17. PROMACTA [Concomitant]
     Active Substance: ELTROMBOPAG OLAMINE
     Indication: INCREASED TENDENCY TO BRUISE
  18. PEGASYS [Suspect]
     Active Substance: PEGINTERFERON ALFA-2A
     Indication: CHRONIC HEPATITIS C
     Route: 058
     Dates: start: 20130514
  19. COPEGUS [Suspect]
     Active Substance: RIBAVIRIN
     Route: 048
  20. FUROSEMIDE. [Concomitant]
     Active Substance: FUROSEMIDE
     Route: 065
  21. ZOLPIDEM TARTRATE. [Concomitant]
     Active Substance: ZOLPIDEM TARTRATE
  22. ZYRTEC [Concomitant]
     Active Substance: CETIRIZINE HYDROCHLORIDE
     Indication: HYPERSENSITIVITY

REACTIONS (39)
  - Red blood cell count decreased [Unknown]
  - Blood potassium increased [Unknown]
  - Pancytopenia [Unknown]
  - Gait disturbance [Unknown]
  - Wheezing [Unknown]
  - White blood cell count decreased [Unknown]
  - Headache [Not Recovered/Not Resolved]
  - Alopecia [Not Recovered/Not Resolved]
  - Headache [Unknown]
  - Dehydration [Unknown]
  - Confusional state [Unknown]
  - Mood swings [Unknown]
  - Platelet count decreased [Unknown]
  - Pyrexia [Unknown]
  - Blood potassium decreased [Unknown]
  - Memory impairment [Unknown]
  - Dizziness [Unknown]
  - Anaemia [Unknown]
  - Fatigue [Unknown]
  - Pancreatitis [Unknown]
  - Dyspnoea [Not Recovered/Not Resolved]
  - Asthma [Unknown]
  - Pruritus [Unknown]
  - Chills [Unknown]
  - Alcoholism [Unknown]
  - Asthenia [Not Recovered/Not Resolved]
  - Blood pressure decreased [Unknown]
  - Diarrhoea [Unknown]
  - Tremor [Unknown]
  - Constipation [Unknown]
  - Fluid retention [Unknown]
  - Rhinorrhoea [Unknown]
  - Bloody discharge [Unknown]
  - Cardiac flutter [Unknown]
  - Decreased appetite [Unknown]
  - Drug administration error [Unknown]
  - Malaise [Unknown]
  - Cough [Unknown]
  - Insomnia [Unknown]

NARRATIVE: CASE EVENT DATE: 20130823
